FAERS Safety Report 4596935-X (Version None)
Quarter: 2005Q1

REPORT INFORMATION
  Report Type: 
  Country: None (occurrence: None)
  Receive Date: 20050228
  Receipt Date: 20050110
  Transmission Date: 20050727
  Serious: Yes (Death, Disabling, Other)
  Sender: FDA-Public Use
  Company Number: 2004240914US

PATIENT
  Age: 74 Year
  Sex: Female
  Weight: 92.0802 kg

DRUGS (10)
  1. CELEBREX [Suspect]
     Indication: OSTEOARTHRITIS
     Dosage: 200 MG (200 MG, 1 IN 1 D), ORAL
     Route: 048
     Dates: start: 20020911
  2. PREDNISONE [Suspect]
     Indication: POLYNEUROPATHY
     Dates: start: 19870101, end: 20040916
  3. ALENDRONATE SODIUM [Concomitant]
  4. ENALAPRIL MALEATE [Concomitant]
  5. DYAZIDE [Concomitant]
  6. PYRIDOSTIGMINE BROMIDE (PYRIDOSTIGMINE BROMIDE) [Concomitant]
  7. SALBUTAMOL (SALBUTAMOL) [Concomitant]
  8. ATENOLOL [Concomitant]
  9. HYDROCHLOROTHIAZIDE [Concomitant]
  10. MAGNESIUM (MAGNESIUM) [Concomitant]

REACTIONS (7)
  - DYSPNOEA [None]
  - FATIGUE [None]
  - MYOCARDIAL INFARCTION [None]
  - OSTEOARTHRITIS [None]
  - RESUSCITATION [None]
  - SUDDEN CARDIAC DEATH [None]
  - WEIGHT INCREASED [None]
